FAERS Safety Report 13099961 (Version 6)
Quarter: 2019Q2

REPORT INFORMATION
  Report Type: Report from Study
  Country: None (occurrence: US)
  Receive Date: 20170110
  Receipt Date: 20190523
  Transmission Date: 20190711
  Serious: Yes (Hospitalization, Other)
  Sender: FDA-Public Use
  Company Number: US-ABBVIE-17K-163-1830817-00

PATIENT
  Age: 59 Year
  Sex: Male

DRUGS (5)
  1. SULFASALAZINE. [Concomitant]
     Active Substance: SULFASALAZINE
     Indication: PRODUCT USED FOR UNKNOWN INDICATION
  2. HUMIRA [Suspect]
     Active Substance: ADALIMUMAB
     Indication: CROHN^S DISEASE
     Route: 058
     Dates: start: 20161216
  3. CITALOPRAM [Concomitant]
     Active Substance: CITALOPRAM HYDROBROMIDE
     Indication: ANXIETY
  4. CARVEDILOL. [Concomitant]
     Active Substance: CARVEDILOL
     Indication: PRODUCT USED FOR UNKNOWN INDICATION
  5. PREDNISONE. [Concomitant]
     Active Substance: PREDNISONE
     Indication: CROHN^S DISEASE

REACTIONS (17)
  - Ventricular extrasystoles [Unknown]
  - Abdominal pain [Recovered/Resolved]
  - Colonoscopy abnormal [Recovering/Resolving]
  - Large intestinal stenosis [Not Recovered/Not Resolved]
  - Large intestinal obstruction [Recovered/Resolved]
  - Pollakiuria [Unknown]
  - Palpitations [Unknown]
  - Arthralgia [Recovering/Resolving]
  - Pyrexia [Unknown]
  - Psoriasis [Recovering/Resolving]
  - Dysuria [Unknown]
  - Colitis [Recovered/Resolved]
  - Drug ineffective [Unknown]
  - Pseudopolyp [Unknown]
  - Aortic dilatation [Unknown]
  - Large intestinal stenosis [Recovered/Resolved]
  - Large intestinal obstruction [Recovered/Resolved]

NARRATIVE: CASE EVENT DATE: 20170102
